FAERS Safety Report 4964986-9 (Version None)
Quarter: 2006Q2

REPORT INFORMATION
  Report Type: 
  Country: None (occurrence: None)
  Receive Date: 20060403
  Receipt Date: 20060317
  Transmission Date: 20061013
  Serious: Yes (Other)
  Sender: FDA-Public Use
  Company Number: 2006EU000935

PATIENT
  Sex: Female
  Weight: 56 kg

DRUGS (2)
  1. PROTOPIC [Suspect]
     Indication: RASH PAPULAR
     Dosage: 0.1 %, UID/QD, TOPICAL
     Route: 061
     Dates: start: 20060105, end: 20060304
  2. PHYTO SOYA [Concomitant]

REACTIONS (1)
  - PAPILLOMA VIRAL INFECTION [None]
